FAERS Safety Report 11624646 (Version 1)
Quarter: 2015Q4

REPORT INFORMATION
  Report Type: Spontaneous
  Country: GB (occurrence: GB)
  Receive Date: 20151013
  Receipt Date: 20151013
  Transmission Date: 20160304
  Serious: Yes (Other)
  Sender: FDA-Public Use
  Company Number: GB-AMGEN-GBRSP2015101422

PATIENT
  Age: 51 Year
  Sex: Female

DRUGS (1)
  1. ENBREL [Suspect]
     Active Substance: ETANERCEPT
     Indication: RHEUMATOID ARTHRITIS
     Dosage: 50 MG, WEEKLY
     Route: 065
     Dates: start: 20150908

REACTIONS (7)
  - Crying [Unknown]
  - Injection site pruritus [Unknown]
  - Condition aggravated [Unknown]
  - Injection site reaction [Unknown]
  - Injection site swelling [Unknown]
  - Rheumatoid arthritis [Unknown]
  - Injection site erythema [Unknown]

NARRATIVE: CASE EVENT DATE: 201509
